FAERS Safety Report 5236192-4 (Version None)
Quarter: 2007Q1

REPORT INFORMATION
  Report Type: 
  Country: None (occurrence: None)
  Receive Date: 20070212
  Receipt Date: 20070202
  Transmission Date: 20070707
  Serious: Yes (Other)
  Sender: FDA-Public Use
  Company Number: US-PFIZER INC-2007009623

PATIENT
  Age: 62 Year
  Sex: Female
  Weight: 53.1 kg

DRUGS (4)
  1. LIPITOR [Suspect]
     Indication: BLOOD CHOLESTEROL INCREASED
     Dates: start: 20061204, end: 20070201
  2. DILANTIN [Concomitant]
     Indication: CONVULSION
  3. ATENOLOL [Concomitant]
     Indication: HYPERTENSION
     Dates: start: 20061101
  4. FOSAMAX [Concomitant]
     Dates: start: 20030101

REACTIONS (3)
  - MUSCLE SPASMS [None]
  - MUSCULOSKELETAL STIFFNESS [None]
  - PAIN [None]
